FAERS Safety Report 4758832-6 (Version None)
Quarter: 2005Q3

REPORT INFORMATION
  Report Type: 
  Country: None (occurrence: None)
  Receive Date: 20050901
  Receipt Date: 20050817
  Transmission Date: 20060218
  Serious: Yes (Hospitalization, Other)
  Sender: FDA-Public Use
  Company Number: 200516268US

PATIENT
  Age: 42 Year
  Sex: Female
  Weight: 140.5 kg

DRUGS (2)
  1. LOVENOX [Suspect]
     Indication: THROMBOSIS PROPHYLAXIS
     Dates: start: 20010626, end: 20010628
  2. COUMADIN [Concomitant]
     Indication: THROMBOSIS
     Dates: start: 19971101, end: 20010625

REACTIONS (12)
  - ANAEMIA [None]
  - GASTROINTESTINAL HAEMORRHAGE [None]
  - HAEMOGLOBIN DECREASED [None]
  - MENORRHAGIA [None]
  - OPERATIVE HAEMORRHAGE [None]
  - PELVIC ABSCESS [None]
  - PLEURAL EFFUSION [None]
  - PYREXIA [None]
  - SEPSIS [None]
  - SPLENECTOMY [None]
  - THROMBOSIS [None]
  - WOUND INFECTION [None]
